FAERS Safety Report 12921295 (Version 1)
Quarter: 2016Q4

REPORT INFORMATION
  Report Type: Spontaneous
  Country: US (occurrence: US)
  Receive Date: 20161107
  Receipt Date: 20161107
  Transmission Date: 20170207
  Serious: No
  Sender: FDA-Public Use
  Company Number: US-BRISTOL-MYERS SQUIBB COMPANY-BMS-2016-092056

PATIENT
  Sex: Female

DRUGS (1)
  1. YERVOY [Suspect]
     Active Substance: IPILIMUMAB
     Indication: MALIGNANT MELANOMA
     Dosage: 790 MG, UNK
     Route: 042
     Dates: start: 20161005, end: 20161026

REACTIONS (8)
  - Muscular weakness [Unknown]
  - Dyspnoea [Unknown]
  - Oropharyngeal discomfort [Unknown]
  - Influenza like illness [Unknown]
  - Back pain [Recovered/Resolved]
  - Gait disturbance [Unknown]
  - Headache [Unknown]
  - Dizziness [Unknown]
